FAERS Safety Report 8836588 (Version 2)
Quarter: 2012Q4

REPORT INFORMATION
  Report Type: Spontaneous
  Country: IT (occurrence: None)
  Receive Date: 20121009
  Receipt Date: 20121114
  Transmission Date: 20130627
  Serious: No
  Sender: FDA-Public Use
  Company Number: 1210ITA001362

PATIENT
  Age: 11 Month
  Sex: Female

DRUGS (2)
  1. ISOCEF (CEFTIBUTEN) ORAL SUSPENSION, 36 MG/ML MG [Suspect]
     Indication: URINARY TRACT INFECTION
     Route: 048
     Dates: start: 20120715, end: 20120717
  2. TACHIPIRINA [Suspect]
     Indication: FEVER
     Route: 054
     Dates: start: 20120711, end: 20120717

REACTIONS (1)
  - Hypothermia [None]
